FAERS Safety Report 16030816 (Version 1)
Quarter: 2019Q2

REPORT INFORMATION
  Report Type: Spontaneous
  Country: US (occurrence: US)
  Receive Date: 20190304
  Receipt Date: 20190304
  Transmission Date: 20190711
  Serious: Yes (Other)
  Sender: FDA-Public Use
  Company Number: None

PATIENT
  Age: 59 Year
  Sex: Male
  Weight: 111.37 kg

DRUGS (5)
  1. LISINOPRIL-HCTZ [Concomitant]
     Active Substance: HYDROCHLOROTHIAZIDE\LISINOPRIL
     Dates: start: 20130904, end: 20180901
  2. TRULICITY [Suspect]
     Active Substance: DULAGLUTIDE
     Indication: TYPE 2 DIABETES MELLITUS
     Dosage: ?          OTHER FREQUENCY:ONCE WEEKLY;?
     Route: 030
     Dates: start: 20170919, end: 20190214
  3. ATORVASTATIN 20MG [Concomitant]
     Active Substance: ATORVASTATIN
     Dates: start: 20161022
  4. ASPIRIN 81MG [Concomitant]
     Active Substance: ASPIRIN
     Dates: start: 20150511
  5. NIFEDIPINE 90MG DAILY [Concomitant]
     Dates: start: 20130923

REACTIONS (1)
  - Salivary gland cancer [None]

NARRATIVE: CASE EVENT DATE: 20190209
